FAERS Safety Report 13456403 (Version 1)
Quarter: 2017Q2

REPORT INFORMATION
  Report Type: Spontaneous
  Country: JP (occurrence: JP)
  Receive Date: 20170418
  Receipt Date: 20170418
  Transmission Date: 20170830
  Serious: Yes (Death, Other)
  Sender: FDA-Public Use
  Company Number: JP-REGENERON PHARMACEUTICALS, INC.-2017-14597

PATIENT

DRUGS (4)
  1. TAFLUPROST [Concomitant]
     Active Substance: TAFLUPROST
     Indication: PRODUCT USED FOR UNKNOWN INDICATION
     Dosage: DAILY DOSE 1 GTT
     Route: 047
     Dates: start: 20160109, end: 20160322
  2. EYLEA [Suspect]
     Active Substance: AFLIBERCEPT
     Indication: PRODUCT USED FOR UNKNOWN INDICATION
     Dosage: ONCE
     Route: 031
     Dates: start: 20161216, end: 20161216
  3. TIMOLOL MALEATE. [Concomitant]
     Active Substance: TIMOLOL MALEATE
     Indication: OPEN ANGLE GLAUCOMA
     Dosage: UNK
     Route: 047
     Dates: start: 20160322, end: 20160805
  4. EYLEA [Suspect]
     Active Substance: AFLIBERCEPT
     Dosage: ONCE
     Route: 031
     Dates: start: 20170113, end: 20170113

REACTIONS (1)
  - Death [Fatal]
